FAERS Safety Report 4590256-7 (Version None)
Quarter: 2005Q1

REPORT INFORMATION
  Report Type: 
  Country: None (occurrence: None)
  Receive Date: 20050217
  Receipt Date: 20050201
  Transmission Date: 20050727
  Serious: Yes (Hospitalization)
  Sender: FDA-Public Use
  Company Number: 10146

PATIENT
  Age: 58 Year
  Sex: Female

DRUGS (2)
  1. LEUCOVORIN CALCIUM [Suspect]
     Indication: COLON CANCER METASTATIC
     Dosage: 45 MG BID UNK
     Route: 065
     Dates: start: 20041119, end: 20041206
  2. TEGAFUR URACIL [Suspect]
     Indication: COLON CANCER METASTATIC
     Dosage: 250 MG BID PO
     Route: 048
     Dates: start: 20041119, end: 20041206

REACTIONS (2)
  - DEHYDRATION [None]
  - DIARRHOEA [None]
